FAERS Safety Report 6289057-3 (Version None)
Quarter: 2009Q3

REPORT INFORMATION
  Report Type: 
  Country: None (occurrence: None)
  Receive Date: 20090728
  Receipt Date: 20090624
  Transmission Date: 20100115
  Serious: Yes (Other)
  Sender: FDA-Public Use
  Company Number: 1022556-2009-00046

PATIENT
  Sex: Female

DRUGS (1)
  1. ACT (RESTORING) MOUTHWASH [Suspect]
     Indication: DENTAL DISORDER PROPHYLAXIS

REACTIONS (2)
  - AGEUSIA [None]
  - DYSGEUSIA [None]
